FAERS Safety Report 13125599 (Version 2)
Quarter: 2017Q2

REPORT INFORMATION
  Report Type: Spontaneous
  Country: US (occurrence: US)
  Receive Date: 20170118
  Receipt Date: 20170601
  Transmission Date: 20170830
  Serious: Yes (Other)
  Sender: FDA-Public Use
  Company Number: US-ASTRAZENECA-2017SE03346

PATIENT
  Age: 24130 Day
  Sex: Female

DRUGS (14)
  1. NEXIUM [Suspect]
     Active Substance: ESOMEPRAZOLE MAGNESIUM
     Route: 048
     Dates: start: 20150811
  2. METOPROLOL. [Concomitant]
     Active Substance: METOPROLOL
  3. PREDNISOLON [Concomitant]
     Active Substance: PREDNISOLONE
     Dosage: 10.0MG UNKNOWN
     Dates: start: 20090313
  4. NEXIUM [Suspect]
     Active Substance: ESOMEPRAZOLE MAGNESIUM
     Route: 048
     Dates: start: 2003
  5. FUROSEMIDE. [Concomitant]
     Active Substance: FUROSEMIDE
  6. KLOR-CON [Concomitant]
     Active Substance: POTASSIUM CHLORIDE
  7. AMBIEN [Concomitant]
     Active Substance: ZOLPIDEM TARTRATE
  8. GABAPENTIN. [Concomitant]
     Active Substance: GABAPENTIN
  9. LISINOPRIL. [Concomitant]
     Active Substance: LISINOPRIL
  10. METHADONE [Concomitant]
     Active Substance: METHADONE HYDROCHLORIDE
  11. OXYCODONE [Concomitant]
     Active Substance: OXYCODONE
  12. NEXIUM [Suspect]
     Active Substance: ESOMEPRAZOLE MAGNESIUM
     Route: 048
     Dates: start: 20080804
  13. DIAZEPAM. [Concomitant]
     Active Substance: DIAZEPAM
  14. METFORMIN [Concomitant]
     Active Substance: METFORMIN HYDROCHLORIDE

REACTIONS (1)
  - Chronic kidney disease [Unknown]

NARRATIVE: CASE EVENT DATE: 20120416
